FAERS Safety Report 8798050 (Version 1)
Quarter: 2012Q4

REPORT INFORMATION
  Report Type: Report from Study
  Country: US (occurrence: US)
  Receive Date: 20120920
  Receipt Date: 20120920
  Transmission Date: 20130627
  Serious: Yes (Hospitalization)
  Sender: FDA-Public Use
  Company Number: US-009507513-2011SP024240

PATIENT
  Age: 40 Year
  Sex: Female
  Weight: 64.41 kg

DRUGS (11)
  1. CORIFOLLITROPIN ALFA [Suspect]
     Indication: INFERTILITY
     Dosage: 150 ?g, ONCE
     Route: 058
     Dates: start: 20101108, end: 20101108
  2. FOLLITROPIN BETA [Suspect]
     Indication: INFERTILITY
     Dosage: 150 ?g, ONCE
     Route: 058
     Dates: start: 20101108, end: 20101108
  3. BLINDED PLACEBO [Suspect]
     Indication: INFERTILITY
     Dosage: 150 ?g, ONCE
     Route: 058
     Dates: start: 20101108, end: 20101108
  4. BLINDED POST TRIAL THERAPY [Suspect]
     Indication: INFERTILITY
     Dosage: 150 ?g, ONCE
     Route: 058
     Dates: start: 20101108, end: 20101108
  5. BLINDED PRE TRIAL THERAPY [Suspect]
     Indication: INFERTILITY
     Dosage: 150 ?g, ONCE
     Route: 058
     Dates: start: 20101108, end: 20101108
  6. BLINDED THERAPY [Suspect]
     Indication: INFERTILITY
     Dosage: 300 IU, QD
     Route: 058
     Dates: start: 20101108, end: 20101114
  7. GANIRELIX ACETATE INJECTION [Suspect]
     Indication: INFERTILITY
     Dosage: 0.25 mg, UNK
     Dates: start: 20101112, end: 20101117
  8. FOLLISTIM AQ [Suspect]
     Indication: INFERTILITY
     Dosage: 300 IU, UNK
     Dates: start: 20101115, end: 20101116
  9. VITAMINS (UNSPECIFIED) [Concomitant]
     Indication: INFERTILITY
     Dosage: INDICATION: INFERTILITY + PREGNANCY
     Route: 048
  10. DOCUSATE SODIUM [Concomitant]
     Indication: CONSTIPATION
     Dosage: 100 mg, BID
     Route: 048
  11. CALCIUM (UNSPECIFIED) [Concomitant]
     Indication: VITAMIN SUPPLEMENTATION
     Dosage: 1000 mg, QD
     Route: 048

REACTIONS (1)
  - Deep vein thrombosis [Recovering/Resolving]
